FAERS Safety Report 9681034 (Version 2)
Quarter: 2013Q4

REPORT INFORMATION
  Report Type: Report from Study
  Country: IN (occurrence: IN)
  Receive Date: 20131111
  Receipt Date: 20131111
  Transmission Date: 20140711
  Serious: Yes (Hospitalization)
  Sender: FDA-Public Use
  Company Number: IN-B.I. PHARMACEUTICALS,INC./RIDGEFIELD-2012-BP-22767BP

PATIENT
  Age: 49 Year
  Sex: Female
  Weight: 34 kg

DRUGS (8)
  1. BIBW 2992 [Suspect]
     Indication: BREAST CANCER METASTATIC
     Dosage: 40 MG
     Route: 048
     Dates: start: 20120303, end: 20121016
  2. VINORELBINE [Suspect]
     Indication: BREAST CANCER METASTATIC
     Dosage: 30 MG
     Route: 042
     Dates: start: 20120303, end: 20121006
  3. IDROPHOS [Concomitant]
     Indication: METASTASES TO BONE
     Dosage: 50 MG
     Route: 048
     Dates: start: 20120305
  4. CALCIMAX FORTE [Concomitant]
     Indication: MINERAL SUPPLEMENTATION
     Route: 048
     Dates: start: 20120305
  5. MOR CORTIN [Concomitant]
     Indication: PAIN MANAGEMENT
     Dosage: 60 MG
     Route: 048
     Dates: start: 20120305
  6. RENERVE PLUS [Concomitant]
     Indication: VITAMIN SUPPLEMENTATION
     Route: 048
     Dates: start: 20120305
  7. OMEPRAZOLE [Concomitant]
     Indication: GASTRITIS
     Dosage: 40 MG
     Route: 048
     Dates: start: 20120305
  8. EPTOIN [Concomitant]
     Indication: PROPHYLAXIS
     Dosage: 200 MG
     Route: 048
     Dates: start: 20120305

REACTIONS (2)
  - Viral infection [Recovered/Resolved]
  - Infection [Recovered/Resolved]
